FAERS Safety Report 9521734 (Version 1)
Quarter: 2013Q3

REPORT INFORMATION
  Report Type: Spontaneous
  Country: US (occurrence: None)
  Receive Date: 20130911
  Receipt Date: 20130911
  Transmission Date: 20140515
  Serious: No
  Sender: FDA-Public Use
  Company Number: AEUSA201300113

PATIENT
  Age: 56 Year
  Sex: Female

DRUGS (12)
  1. GAMUNEX-C (10 PCT) [Suspect]
     Indication: IMMUNODEFICIENCY
     Route: 058
     Dates: start: 20130311
  2. TOPAMAX [Concomitant]
  3. PROTONIX [Concomitant]
  4. XYZAL [Concomitant]
  5. PHENERGAN /00033001/ [Concomitant]
  6. TRAZODONE [Concomitant]
  7. LORTAB /00607101/ [Concomitant]
  8. FENTANYL [Concomitant]
  9. XANAX [Concomitant]
  10. AMITRIPTYLINE [Concomitant]
  11. LASIX /00032601/ [Concomitant]
  12. LUNESTA [Concomitant]

REACTIONS (2)
  - Injection site urticaria [None]
  - Pruritus [None]
